FAERS Safety Report 25604314 (Version 1)
Quarter: 2025Q3

REPORT INFORMATION
  Report Type: Spontaneous
  Country: GB (occurrence: GB)
  Receive Date: 20250725
  Receipt Date: 20250725
  Transmission Date: 20251021
  Serious: Yes (Other)
  Sender: MERCK SHARP & DOHME LLC
  Company Number: GB-MHRA-TPP59326832C382545YC1753291730022

PATIENT
  Age: 57 Year
  Sex: Female
  Weight: 52 kg

DRUGS (9)
  1. SITAGLIPTIN [Suspect]
     Active Substance: SITAGLIPTIN
     Indication: Ill-defined disorder
     Dosage: 100 MG, QD
     Dates: start: 20250512
  2. EMPAGLIFLOZIN [Concomitant]
     Active Substance: EMPAGLIFLOZIN
     Indication: Ill-defined disorder
     Dosage: TAKE ONE DAILY
     Dates: start: 20250121
  3. ALENDRONIC ACID [Concomitant]
     Active Substance: ALENDRONIC ACID
     Indication: Ill-defined disorder
     Dosage: TAKE ONE WEEKLY
     Dates: start: 20250121
  4. LINAGLIPTIN [Concomitant]
     Active Substance: LINAGLIPTIN
     Indication: Ill-defined disorder
     Dosage: TAKE ONE DAILY
     Dates: start: 20250121
  5. SIMVASTATIN [Concomitant]
     Active Substance: SIMVASTATIN
     Indication: Ill-defined disorder
     Dosage: TAKE ONE AT NIGHT
     Dates: start: 20250121
  6. LANTUS [Concomitant]
     Active Substance: INSULIN GLARGINE
     Indication: Ill-defined disorder
     Dates: start: 20250121
  7. INSULIN ASPART [Concomitant]
     Active Substance: INSULIN ASPART
     Indication: Ill-defined disorder
     Dates: start: 20250125
  8. PERINDOPRIL ERBUMINE [Concomitant]
     Active Substance: PERINDOPRIL ERBUMINE
     Indication: Ill-defined disorder
     Dosage: TAKE ONE TABLET TWICE A DAY
     Dates: start: 20250121
  9. METFORMIN [Concomitant]
     Active Substance: METFORMIN HYDROCHLORIDE
     Indication: Ill-defined disorder
     Dosage: TAKE TWO TABLETS TWICE A DAY
     Dates: start: 20250121

REACTIONS (2)
  - Drug intolerance [Recovered/Resolved]
  - Condition aggravated [Unknown]

NARRATIVE: CASE EVENT DATE: 20250619
